FAERS Safety Report 8954521 (Version 3)
Quarter: 2012Q4

REPORT INFORMATION
  Report Type: 
  Country: JP (occurrence: JP)
  Receive Date: 20121207
  Receipt Date: 20121220
  Transmission Date: 20130627
  Serious: Yes (Hospitalization)
  Sender: FDA-Public Use
  Company Number: JP-VERTEX PHARMACEUTICALS INC.-2012-025821

PATIENT
  Age: 63 Year
  Sex: Female

DRUGS (8)
  1. TELAVIC [Suspect]
     Indication: CHRONIC HEPATITIS C
     Dosage: 1500 mg, qd
     Route: 048
     Dates: start: 20121001, end: 20121029
  2. TELAVIC [Suspect]
     Dosage: UNK
     Route: 048
     Dates: start: 20121119
  3. RIBAVIRIN [Suspect]
     Indication: CHRONIC HEPATITIS C
     Dosage: 600 mg, qd
     Route: 048
     Dates: start: 20121001, end: 20121029
  4. RIBAVIRIN [Suspect]
     Dosage: UNK
     Route: 048
     Dates: start: 20121112
  5. PEGINTERFERON ALFA-2B [Suspect]
     Indication: CHRONIC HEPATITIS C
     Dosage: 1.5 ?g/kg,qw
     Route: 058
     Dates: start: 20121001
  6. RENIVACE [Concomitant]
     Dosage: 5 mg, qd
     Route: 048
  7. AMLODIN [Concomitant]
     Dosage: 5 mg, qd
     Route: 048
  8. ZYLORIC [Concomitant]
     Dosage: 200 mg, qd
     Route: 048
     Dates: start: 20121004, end: 20121030

REACTIONS (1)
  - Pancreatitis acute [Recovered/Resolved]
